FAERS Safety Report 19460343 (Version 3)
Quarter: 2021Q3

REPORT INFORMATION
  Report Type: Report from Study
  Country: CA (occurrence: CA)
  Receive Date: 20210625
  Receipt Date: 20210921
  Transmission Date: 20211014
  Serious: Yes (Other)
  Sender: FDA-Public Use
  Company Number: CA-JNJFOC-20210637142

PATIENT
  Age: 23 Year
  Sex: Male
  Weight: 77.7 kg

DRUGS (1)
  1. REMICADE [Suspect]
     Active Substance: INFLIXIMAB
     Indication: CROHN^S DISEASE
     Dosage: ADDITIONAL EXPIRY DATE: 29?FEB?2024
     Route: 042
     Dates: start: 20130730

REACTIONS (4)
  - Infected fistula [Recovered/Resolved]
  - Off label use [Unknown]
  - Oral candidiasis [Recovered/Resolved]
  - Product use issue [Unknown]

NARRATIVE: CASE EVENT DATE: 20210519
